FAERS Safety Report 24226711 (Version 1)
Quarter: 2024Q3

REPORT INFORMATION
  Report Type: Report from Study
  Country: US (occurrence: None)
  Receive Date: 20240820
  Receipt Date: 20240820
  Transmission Date: 20241017
  Serious: Yes (Hospitalization)
  Sender: ASTRAZENECA
  Company Number: 2022A162553

PATIENT
  Sex: Female

DRUGS (1)
  1. TAGRISSO [Suspect]
     Active Substance: OSIMERTINIB
     Indication: Lung carcinoma cell type unspecified stage 0
     Route: 048
     Dates: start: 20210827

REACTIONS (10)
  - Pneumonia [Unknown]
  - Gastrointestinal neoplasm [Unknown]
  - Blood pressure abnormal [Unknown]
  - Arthralgia [Unknown]
  - Depressed mood [Unknown]
  - Chills [Unknown]
  - Fatigue [Unknown]
  - Epistaxis [Unknown]
  - Contusion [Unknown]
  - Cardiomyopathy [Unknown]
